FAERS Safety Report 10388801 (Version 4)
Quarter: 2014Q4

REPORT INFORMATION
  Report Type: Spontaneous
  Country: JP (occurrence: JP)
  Receive Date: 20140816
  Receipt Date: 20141024
  Transmission Date: 20150528
  Serious: Yes (Hospitalization)
  Sender: FDA-Public Use
  Company Number: JP-TEVA-375505USA

PATIENT
  Age: 2 Month
  Sex: Male

DRUGS (16)
  1. PREDNISOLONE. [Suspect]
     Active Substance: PREDNISOLONE
     Dates: start: 20090918, end: 20100220
  2. LANSOPRAZOLE. [Concomitant]
     Active Substance: LANSOPRAZOLE
  3. BENDAMUSTINE [Suspect]
     Active Substance: BENDAMUSTINE
     Route: 042
     Dates: start: 20110810, end: 20110811
  4. BENDAMUSTINE [Suspect]
     Active Substance: BENDAMUSTINE
     Route: 042
     Dates: start: 20110831, end: 20110901
  5. SULFAMETHOXAZOLE-TRIMETHOPRIM (SMZ) [Concomitant]
     Active Substance: SULFAMETHOXAZOLE\TRIMETHOPRIM
     Dates: start: 20100209
  6. CYCLOPHOSPHAMIDE. [Suspect]
     Active Substance: CYCLOPHOSPHAMIDE
     Dates: start: 20090918, end: 20100202
  7. VINCRISTINE SULFATE. [Suspect]
     Active Substance: VINCRISTINE SULFATE
     Dates: start: 20090918, end: 20100202
  8. BENDAMUSTINE [Suspect]
     Active Substance: BENDAMUSTINE
     Indication: MANTLE CELL LYMPHOMA
     Route: 042
     Dates: start: 20110616, end: 20110617
  9. BROTIZOLAM [Concomitant]
     Active Substance: BROTIZOLAM
     Dosage: .25 MILLIGRAM DAILY;
     Route: 048
  10. BENDAMUSTINE [Suspect]
     Active Substance: BENDAMUSTINE
     Route: 042
     Dates: start: 20110720, end: 20110721
  11. DIGOXIN. [Concomitant]
     Active Substance: DIGOXIN
     Dosage: .125 MILLIGRAM DAILY;
     Route: 048
  12. BENDAMUSTINE [Suspect]
     Active Substance: BENDAMUSTINE
     Route: 042
     Dates: start: 20111012, end: 20111013
  13. RITUXIMAB [Suspect]
     Active Substance: RITUXIMAB
     Dates: start: 20090918, end: 20100220
  14. POLAPREZINC [Concomitant]
     Route: 048
     Dates: start: 20100209
  15. LOXOPROFEN SODIUM [Concomitant]
     Active Substance: LOXOPROFEN SODIUM
     Dosage: 180 MILLIGRAM DAILY;
     Route: 048
     Dates: start: 20110306
  16. LANSOPRAZOLE. [Concomitant]
     Active Substance: LANSOPRAZOLE
     Dosage: 15 MILLIGRAM DAILY;
     Route: 048

REACTIONS (3)
  - Aortic dissection [Unknown]
  - Lung neoplasm malignant [Unknown]
  - Lymphocyte count decreased [Unknown]

NARRATIVE: CASE EVENT DATE: 20120224
